FAERS Safety Report 4830623-7 (Version None)
Quarter: 2005Q4

REPORT INFORMATION
  Report Type: 
  Country: None (occurrence: None)
  Receive Date: 20051114
  Receipt Date: 20051102
  Transmission Date: 20060501
  Serious: Yes (Hospitalization)
  Sender: FDA-Public Use
  Company Number: 2005151404

PATIENT
  Age: 9 Year
  Sex: Male

DRUGS (4)
  1. GENOTROPIN [Suspect]
     Indication: RENAL FAILURE CHRONIC
     Dosage: 1 MG (DAILY),
     Dates: start: 20040420
  2. CALCIUM CARBONATE (CALCIUM CARBONATE) [Concomitant]
  3. OXYBUTYNIN CHLORIDE (OXYBUTYNIN HYDROCHLORIDE) [Concomitant]
  4. CALCITRIOL [Concomitant]

REACTIONS (2)
  - PYELONEPHRITIS [None]
  - URINARY TRACT INFECTION PSEUDOMONAL [None]
